FAERS Safety Report 25704467 (Version 1)
Quarter: 2025Q3

REPORT INFORMATION
  Report Type: Report from Study
  Country: US (occurrence: US)
  Receive Date: 20250820
  Receipt Date: 20250820
  Transmission Date: 20251020
  Serious: No
  Sender: SUNOVION
  Company Number: US-SMPA-2025SPA010407

PATIENT
  Age: 64 Year
  Sex: Male

DRUGS (14)
  1. ORGOVYX [Suspect]
     Active Substance: RELUGOLIX
     Indication: Prostate cancer
     Route: 048
  2. ORGOVYX [Suspect]
     Active Substance: RELUGOLIX
     Route: 048
  3. ASPIRIN [Concomitant]
     Active Substance: ASPIRIN
  4. ATORVASTATIN [Concomitant]
     Active Substance: ATORVASTATIN
  5. BUMEX [Concomitant]
     Active Substance: BUMETANIDE
  6. ELIQUIS [Concomitant]
     Active Substance: APIXABAN
  7. ENTRESTO [Concomitant]
     Active Substance: SACUBITRIL\VALSARTAN
  8. EPLERENONE [Concomitant]
     Active Substance: EPLERENONE
  9. FARXIGA [Concomitant]
     Active Substance: DAPAGLIFLOZIN PROPANEDIOL
  10. METOPROLOL SUCCINATE [Concomitant]
     Active Substance: METOPROLOL SUCCINATE
  11. NUBEQA [Concomitant]
     Active Substance: DAROLUTAMIDE
  12. OXYCODONE [Concomitant]
     Active Substance: OXYCODONE
  13. RABEPRAZOLE [Concomitant]
     Active Substance: RABEPRAZOLE
  14. TAMSULOSIN [Concomitant]
     Active Substance: TAMSULOSIN

REACTIONS (1)
  - Asthenia [Unknown]
